FAERS Safety Report 5232788-4 (Version None)
Quarter: 2007Q1

REPORT INFORMATION
  Report Type: 
  Country: None (occurrence: None)
  Receive Date: 20070207
  Receipt Date: 20070125
  Transmission Date: 20070707
  Serious: Yes (Hospitalization)
  Sender: FDA-Public Use
  Company Number: PHNU2006DE03697

PATIENT
  Age: 68 Year
  Sex: Female
  Weight: 50 kg

DRUGS (13)
  1. GLEEVEC [Suspect]
     Indication: MASTOCYTOSIS
     Dosage: 400 MG, QD
     Route: 048
     Dates: start: 20061018, end: 20061106
  2. AVELOX [Suspect]
     Indication: PNEUMONIA
     Dosage: 400 ML, QD
     Route: 042
     Dates: start: 20061101, end: 20061103
  3. COAPROVEL [Concomitant]
     Indication: MASTOCYTOSIS
     Dosage: 150 MG/DAY
     Route: 048
  4. CIMETIDINE HCL [Concomitant]
     Indication: MASTOCYTOSIS
     Dosage: 400 MG/DAY
     Route: 048
  5. XUSAL [Concomitant]
     Indication: MASTOCYTOSIS
     Dosage: 5 MG, QD
     Route: 048
  6. NATRIUMCROMOGLICAT [Concomitant]
     Indication: MASTOCYTOSIS
     Dosage: 400 MG/DAY
     Route: 048
     Dates: start: 20061006
  7. CELEBREX [Concomitant]
     Dosage: 400 MG/DAY
     Route: 048
     Dates: start: 20061029
  8. STANGYL [Concomitant]
     Dosage: 15 DRP, QD
     Route: 048
     Dates: start: 20061012
  9. VALORON ^GOEDECKE^ [Concomitant]
     Dosage: 250 DRP/DAY
     Route: 048
  10. DECORTIN-H [Concomitant]
     Dosage: 10 MG/DAY
     Route: 048
     Dates: start: 20061024, end: 20061026
  11. DECORTIN-H [Concomitant]
     Dosage: 7.5 MG/DAY
     Route: 048
     Dates: start: 20061027, end: 20061029
  12. DECORTIN-H [Concomitant]
     Dosage: 5 MG/DAY
     Route: 048
     Dates: start: 20061030, end: 20061101
  13. DECORTIN-H [Concomitant]
     Dosage: 10 MG/DAY
     Route: 048
     Dates: start: 20061103, end: 20061123

REACTIONS (9)
  - ANAPHYLACTIC SHOCK [None]
  - C-REACTIVE PROTEIN INCREASED [None]
  - HYPERSENSITIVITY [None]
  - HYPOTENSION [None]
  - PLEURAL EFFUSION [None]
  - PNEUMONIA [None]
  - PROTHROMBIN TIME PROLONGED [None]
  - RASH [None]
  - TACHYCARDIA [None]
